FAERS Safety Report 24791462 (Version 1)
Quarter: 2024Q4

REPORT INFORMATION
  Report Type: Spontaneous
  Country: US (occurrence: US)
  Receive Date: 20241231
  Receipt Date: 20241231
  Transmission Date: 20250115
  Serious: No
  Sender: SUNOVION
  Company Number: US-SMPA-2024SPA005914

PATIENT

DRUGS (1)
  1. APTIOM [Suspect]
     Active Substance: ESLICARBAZEPINE ACETATE
     Dosage: 600 MG, BID
     Route: 048

REACTIONS (5)
  - Weight decreased [Unknown]
  - Memory impairment [Unknown]
  - Decreased appetite [Unknown]
  - Dizziness [Unknown]
  - Inappropriate schedule of product administration [Unknown]
